FAERS Safety Report 5072261-X (Version None)
Quarter: 2006Q3

REPORT INFORMATION
  Report Type: 
  Country: None (occurrence: None)
  Receive Date: 20060807
  Receipt Date: 20060727
  Transmission Date: 20061208
  Serious: Yes (Hospitalization)
  Sender: FDA-Public Use
  Company Number: US-KINGPHARMUSA00001-K200600965

PATIENT
  Age: 84 Year
  Sex: Female

DRUGS (6)
  1. ALTACE [Suspect]
     Dosage: 1.25 MG, QD
     Route: 048
     Dates: end: 20031010
  2. BEFIZAL [Concomitant]
     Route: 048
  3. ASPIRIN [Concomitant]
     Route: 048
  4. TANAKAN [Concomitant]
     Dosage: UNK, UNK
     Route: 048
  5. LACTULOSE [Concomitant]
  6. MONO-TILDIEM [Suspect]
     Dosage: 300 MG, QD
     Route: 048
     Dates: end: 20031010

REACTIONS (5)
  - BRADYCARDIA [None]
  - HYPERKALAEMIA [None]
  - IATROGENIC INJURY [None]
  - OVERDOSE [None]
  - RENAL FAILURE ACUTE [None]
